FAERS Safety Report 9341278 (Version 1)
Quarter: 2013Q2

REPORT INFORMATION
  Report Type: Spontaneous
  Country: US (occurrence: None)
  Receive Date: 20130610
  Receipt Date: 20130610
  Transmission Date: 20140414
  Serious: No
  Sender: FDA-Public Use
  Company Number: None

PATIENT
  Sex: Female
  Weight: 77.11 kg

DRUGS (2)
  1. VENLAFAXINE ER [Suspect]
     Dosage: MOUTH
  2. PROZAC [Suspect]
     Dosage: MOUTH

REACTIONS (1)
  - Depression [None]
